FAERS Safety Report 12402781 (Version 1)
Quarter: 2016Q2

REPORT INFORMATION
  Report Type: Spontaneous
  Country: FR (occurrence: FR)
  Receive Date: 20160525
  Receipt Date: 20160525
  Transmission Date: 20160815
  Serious: Yes (Death, Other)
  Sender: FDA-Public Use
  Company Number: FR-MDT-ADR-2016-00938

PATIENT
  Age: 34 Year
  Sex: Male

DRUGS (8)
  1. CITALOPRAM [Suspect]
     Active Substance: CITALOPRAM HYDROBROMIDE
     Route: 065
  2. BACLOFEN. [Suspect]
     Active Substance: BACLOFEN
     Route: 065
  3. ALPRAZOLAM. [Suspect]
     Active Substance: ALPRAZOLAM
     Route: 065
  4. DEPAKOTE [Suspect]
     Active Substance: DIVALPROEX SODIUM
     Route: 065
  5. DEPAMIDE [Suspect]
     Active Substance: VALPROMIDE
     Route: 065
  6. THERALENE [Suspect]
     Active Substance: TRIMEPRAZINE
     Route: 065
  7. ZOPICLONE [Suspect]
     Active Substance: ZOPICLONE
     Route: 065
  8. PROPRANOLOL [Suspect]
     Active Substance: PROPRANOLOL\PROPRANOLOL HYDROCHLORIDE
     Route: 065

REACTIONS (4)
  - Toxicity to various agents [Unknown]
  - Cardio-respiratory arrest [Unknown]
  - Intentional product misuse [Unknown]
  - Death [Fatal]
